FAERS Safety Report 5922505-4 (Version None)
Quarter: 2008Q4

REPORT INFORMATION
  Report Type: 
  Country: None (occurrence: None)
  Receive Date: 20081017
  Receipt Date: 20081006
  Transmission Date: 20090506
  Serious: Yes (Hospitalization)
  Sender: FDA-Public Use
  Company Number: PHHY2008DE24730

PATIENT
  Sex: Female

DRUGS (2)
  1. RASILEZ [Suspect]
  2. HEPARIN [Concomitant]

REACTIONS (2)
  - PETECHIAE [None]
  - SURGERY [None]
